FAERS Safety Report 11275944 (Version 1)
Quarter: 2015Q3

REPORT INFORMATION
  Report Type: Spontaneous
  Country: US (occurrence: None)
  Receive Date: 20150715
  Receipt Date: 20150715
  Transmission Date: 20151125
  Serious: Yes (Hospitalization)
  Sender: FDA-Public Use
  Company Number: None

PATIENT
  Age: 89 Year
  Sex: Female
  Weight: 67 kg

DRUGS (14)
  1. ASPIRIN. [Concomitant]
     Active Substance: ASPIRIN
  2. LIPITOR [Concomitant]
     Active Substance: ATORVASTATIN CALCIUM
  3. SIMVASTATIN (ZOCOR) [Concomitant]
  4. CARVEDILOL (COREG) [Concomitant]
  5. PLAVIX [Concomitant]
     Active Substance: CLOPIDOGREL BISULFATE
  6. TICAGRELOR [Suspect]
     Active Substance: TICAGRELOR
     Indication: STENT PLACEMENT
     Route: 048
     Dates: start: 20150618, end: 20150628
  7. TIGAGRELOR (BRILINTA) [Concomitant]
  8. R-0 REFRESH OPHTHALMIC [Concomitant]
  9. NITROGLYCERIN SUBLINGUAL (NITROSTAT) SL [Concomitant]
  10. TRAMADOL (ULTRAM) [Concomitant]
  11. CALCIUM CARBONATE-VIT D3-MINERALS (CALTRATE PLUS) [Concomitant]
  12. BENICAR [Concomitant]
     Active Substance: OLMESARTAN MEDOXOMIL
  13. ISOSORBIDE MONONITRATE ER (IMDUR) [Concomitant]
  14. RISEDRONATE (ACTONEL) [Concomitant]

REACTIONS (7)
  - Melaena [None]
  - Immune thrombocytopenic purpura [None]
  - Stomatitis [None]
  - Contusion [None]
  - Thrombocytopenia [None]
  - Blister [None]
  - Oral mucosal blistering [None]

NARRATIVE: CASE EVENT DATE: 20150628
